FAERS Safety Report 7425338-5 (Version None)
Quarter: 2011Q1

REPORT INFORMATION
  Report Type: 
  Country: None (occurrence: None)
  Receive Date: 20110302
  Receipt Date: 20101104
  Transmission Date: 20110831
  Serious: No
  Sender: FDA-Public Use
  Company Number: 017435

PATIENT
  Sex: Female

DRUGS (3)
  1. CIMZIA [Suspect]
     Indication: CROHN'S DISEASE
     Dosage: (200 MG 1X/2 WEEKS SUBCUTANEOUS), (200 MG 1X/2 WEEKS SUBCUTANEOUS)
     Route: 058
     Dates: start: 20101007
  2. CIMZIA [Suspect]
     Indication: CROHN'S DISEASE
     Dosage: (200 MG 1X/2 WEEKS SUBCUTANEOUS), (200 MG 1X/2 WEEKS SUBCUTANEOUS)
     Route: 058
     Dates: start: 20090326
  3. CIMZIA [Suspect]

REACTIONS (7)
  - INFLUENZA [None]
  - HYPERSOMNIA [None]
  - PAIN [None]
  - FREQUENT BOWEL MOVEMENTS [None]
  - ABDOMINAL DISTENSION [None]
  - FATIGUE [None]
  - INTESTINAL OBSTRUCTION [None]
